FAERS Safety Report 10200246 (Version 1)
Quarter: 2014Q2

REPORT INFORMATION
  Report Type: Spontaneous
  Country: GB (occurrence: GB)
  Receive Date: 20140527
  Receipt Date: 20140527
  Transmission Date: 20141212
  Serious: Yes (Other)
  Sender: FDA-Public Use
  Company Number: PHHY2014GB062378

PATIENT
  Age: 83 Year
  Sex: Male

DRUGS (5)
  1. FELODIPINE [Concomitant]
  2. SERETIDE [Concomitant]
  3. DOXAZOSIN [Suspect]
     Indication: HYPERTENSION
     Dosage: 1 MG, UNK
     Route: 048
     Dates: start: 20140501, end: 20140502
  4. ATENOLOL [Concomitant]
  5. BENDROFLUMETHIAZID [Concomitant]

REACTIONS (3)
  - Loss of consciousness [Recovered/Resolved]
  - Hypotension [Recovered/Resolved]
  - Urinary incontinence [Recovered/Resolved]
